FAERS Safety Report 7078762-7 (Version None)
Quarter: 2010Q4

REPORT INFORMATION
  Report Type: 
  Country: None (occurrence: None)
  Receive Date: 20101102
  Receipt Date: 20101029
  Transmission Date: 20110411
  Serious: Yes (Other)
  Sender: FDA-Public Use
  Company Number: JP-PFIZER INC-2010138008

PATIENT
  Age: 72 Year
  Sex: Female

DRUGS (12)
  1. CELECOX [Suspect]
     Dosage: 200 MG, DAILY
     Route: 048
     Dates: start: 20091026
  2. PERINDOPRIL [Suspect]
     Dosage: UNK
     Route: 048
  3. NIFEDIPINE [Suspect]
     Dosage: UNK
     Route: 048
  4. NEUROTROPIN [Suspect]
     Dosage: 16 DF, UNKNOWN/D
     Route: 048
  5. 8-HOUR BAYER [Suspect]
     Dosage: UNK
     Route: 048
  6. LASIX [Suspect]
     Dosage: UNK
     Route: 048
  7. PRAVASTATIN SODIUM [Suspect]
     Dosage: UNK
     Route: 048
  8. FAMOTIDINE [Suspect]
     Dosage: UNK
     Route: 048
  9. WARFARIN [Suspect]
     Dosage: UNK
     Route: 048
  10. RIVOTRIL [Suspect]
     Dosage: UNK
     Route: 048
  11. RHYTHMY [Suspect]
     Dosage: UNK
     Route: 048
  12. SENNOSIDE A+B [Suspect]
     Dosage: UNK
     Route: 048

REACTIONS (2)
  - CHROMATURIA [None]
  - URINE ODOUR ABNORMAL [None]
